FAERS Safety Report 7832881-3 (Version None)
Quarter: 2011Q4

REPORT INFORMATION
  Report Type: 
  Country: None (occurrence: None)
  Receive Date: 20111024
  Receipt Date: 20111018
  Transmission Date: 20120403
  Serious: Yes (Other)
  Sender: FDA-Public Use
  Company Number: ES-PAR PHARMACEUTICAL, INC-2011SCPR003298

PATIENT

DRUGS (5)
  1. DEXAMETHASONE [Suspect]
     Indication: BRAIN COMPRESSION
     Dosage: UNK, UNKNOWN
     Route: 065
  2. TEMOZOLOMIDE [Concomitant]
     Indication: OLIGODENDROGLIOMA
     Dosage: SEVERAL CYCLES FOR A YEAR
     Route: 065
  3. DEXAMETHASONE [Suspect]
     Dosage: TAPERED TO 1 MG / DAY
     Route: 065
  4. LENITOIN [Concomitant]
     Indication: OLIGODENDROGLIOMA
     Dosage: 100 MG/8 HOURS
     Route: 065
  5. LEVETIRACETAM [Concomitant]
     Indication: OLIGODENDROGLIOMA
     Dosage: 500 MG/ 12 HOURS
     Route: 065

REACTIONS (3)
  - PANNICULITIS LOBULAR [None]
  - CUSHINGOID [None]
  - WEIGHT INCREASED [None]
